FAERS Safety Report 8776765 (Version 3)
Quarter: 2012Q4

REPORT INFORMATION
  Report Type: Report from Study
  Country: JP (occurrence: JP)
  Receive Date: 20120911
  Receipt Date: 20121114
  Transmission Date: 20130627
  Serious: Yes (Other)
  Sender: FDA-Public Use
  Company Number: JP-JNJFOC-20120903517

PATIENT
  Age: 56 Year
  Sex: Female

DRUGS (14)
  1. SIMPONI [Suspect]
     Indication: RHEUMATOID ARTHRITIS
     Route: 058
     Dates: start: 20120217, end: 20120406
  2. SIMPONI [Suspect]
     Indication: RHEUMATOID ARTHRITIS
     Route: 058
     Dates: start: 20120120
  3. BUCILLAMINE [Suspect]
     Indication: RHEUMATOID ARTHRITIS
     Route: 048
     Dates: start: 20120427
  4. BUCILLAMINE [Suspect]
     Indication: RHEUMATOID ARTHRITIS
     Route: 048
     Dates: end: 20120106
  5. METHOTREXATE [Suspect]
     Indication: RHEUMATOID ARTHRITIS
     Route: 048
     Dates: end: 20120409
  6. PREDNISOLONE [Concomitant]
     Indication: RHEUMATOID ARTHRITIS
     Route: 048
     Dates: start: 20110907, end: 20120119
  7. PREDNISOLONE [Concomitant]
     Indication: RHEUMATOID ARTHRITIS
     Route: 048
     Dates: start: 20120217
  8. PREDNISOLONE [Concomitant]
     Indication: RHEUMATOID ARTHRITIS
     Route: 048
     Dates: start: 20120120, end: 20120216
  9. REBAMIPIDE [Concomitant]
     Indication: PROPHYLAXIS
     Route: 048
  10. TAKEPRON [Concomitant]
     Indication: PROPHYLAXIS
  11. FOLIAMIN [Concomitant]
     Indication: PROPHYLAXIS
  12. CELECOXIB [Concomitant]
     Indication: RHEUMATOID ARTHRITIS
     Route: 048
     Dates: start: 20120203
  13. ARTZ DISPO [Concomitant]
     Indication: RHEUMATOID ARTHRITIS
  14. KENACORT A [Concomitant]
     Indication: RHEUMATOID ARTHRITIS

REACTIONS (1)
  - Interstitial lung disease [Not Recovered/Not Resolved]
